FAERS Safety Report 6825244-0 (Version None)
Quarter: 2010Q3

REPORT INFORMATION
  Report Type: 
  Country: None (occurrence: None)
  Receive Date: 20100708
  Receipt Date: 20061215
  Transmission Date: 20110219
  Serious: No
  Sender: FDA-Public Use
  Company Number: US-PFIZER INC-2006156048

PATIENT
  Sex: Female

DRUGS (2)
  1. CHANTIX [Suspect]
     Dates: start: 20061019, end: 20061102
  2. ANTIHYPERTENSIVES [Concomitant]

REACTIONS (8)
  - DEPRESSED MOOD [None]
  - HYPERHIDROSIS [None]
  - NODULE [None]
  - RASH [None]
  - SCAR [None]
  - SKIN IRRITATION [None]
  - VAGINAL LESION [None]
  - VULVOVAGINAL PAIN [None]
